FAERS Safety Report 6649633-2 (Version None)
Quarter: 2010Q1

REPORT INFORMATION
  Report Type: 
  Country: None (occurrence: None)
  Receive Date: 20100324
  Receipt Date: 20090212
  Transmission Date: 20100710
  Serious: No
  Sender: FDA-Public Use
  Company Number: US-AMGEN-KDL333639

PATIENT
  Sex: Female

DRUGS (2)
  1. NEULASTA [Suspect]
     Indication: CHEMOTHERAPY
     Dates: start: 20080401
  2. ADRIAMYCIN PFS [Concomitant]

REACTIONS (4)
  - ALOPECIA [None]
  - ARTHRALGIA [None]
  - BONE PAIN [None]
  - CHILLS [None]
